FAERS Safety Report 18164360 (Version 13)
Quarter: 2022Q1

REPORT INFORMATION
  Report Type: Report from Study
  Country: DE (occurrence: DE)
  Receive Date: 20200818
  Receipt Date: 20220201
  Transmission Date: 20220423
  Serious: Yes (Hospitalization)
  Sender: FDA-Public Use
  Company Number: DE-CELGENE-DEU-20200801506

PATIENT
  Age: 51 Year
  Sex: Male
  Weight: 74 kg

DRUGS (30)
  1. ABRAXANE [Suspect]
     Active Substance: PACLITAXEL
     Indication: Non-small cell lung cancer stage IV
     Dosage: 100 MILLIGRAM
     Route: 042
     Dates: start: 20200513, end: 20200716
  2. ABRAXANE [Suspect]
     Active Substance: PACLITAXEL
     Indication: Non-small cell lung cancer
     Dosage: 100 MILLIGRAM
     Route: 042
     Dates: start: 20200730, end: 20200730
  3. PEMBROLIZUMAB [Suspect]
     Active Substance: PEMBROLIZUMAB
     Indication: Non-small cell lung cancer stage IV
     Dosage: 200 MILLIGRAM
     Route: 042
     Dates: start: 20200513, end: 20200702
  4. PEMBROLIZUMAB [Suspect]
     Active Substance: PEMBROLIZUMAB
     Dosage: 200 MILLIGRAM
     Route: 042
     Dates: start: 20200730, end: 20200730
  5. CARBOPLATIN [Suspect]
     Active Substance: CARBOPLATIN
     Indication: Non-small cell lung cancer stage IV
     Dosage: 6 MG/ML/MIN?TITRATED TO AN AREA UNDER THE CURVE (AUC)
     Route: 042
     Dates: start: 20200513, end: 20200603
  6. CARBOPLATIN [Suspect]
     Active Substance: CARBOPLATIN
     Dosage: 6 MG/ML/MIN?TITRATED TO AN AREA UNDER THE CURVE (AUC)
     Route: 042
     Dates: start: 20200702, end: 20200702
  7. BISOPROLOL [Concomitant]
     Active Substance: BISOPROLOL
     Indication: Atrial flutter
     Dosage: 7.5 MILLIGRAM
     Route: 048
     Dates: start: 20200207
  8. CHOLECALCIFEROL [Concomitant]
     Active Substance: CHOLECALCIFEROL
     Indication: Vitamin supplementation
     Dosage: 1000 IU (INTERNATIONAL UNIT)
     Route: 048
     Dates: start: 20200317
  9. EDOXABAN TOSYLATE [Concomitant]
     Active Substance: EDOXABAN TOSYLATE
     Indication: Atrial flutter
     Dosage: 30 MILLIGRAM
     Route: 048
     Dates: start: 20200514
  10. EDOXABAN TOSYLATE [Concomitant]
     Active Substance: EDOXABAN TOSYLATE
     Dosage: 60 MILLIGRAM
     Route: 048
     Dates: start: 20200522
  11. Unacid [Concomitant]
     Indication: C-reactive protein increased
     Dosage: 9 GRAM
     Route: 042
     Dates: start: 20200509
  12. ALIZAPRIDE HYDROCHLORIDE [Concomitant]
     Active Substance: ALIZAPRIDE HYDROCHLORIDE
     Indication: Nausea
     Dosage: 50 MILLIGRAM
     Route: 048
     Dates: start: 20200515
  13. ALIZAPRIDE HYDROCHLORIDE [Concomitant]
     Active Substance: ALIZAPRIDE HYDROCHLORIDE
     Indication: Cough
     Dosage: 50 MILLIGRAM
     Route: 048
     Dates: start: 20200702
  14. ALIZAPRIDE HYDROCHLORIDE [Concomitant]
     Active Substance: ALIZAPRIDE HYDROCHLORIDE
     Indication: Product used for unknown indication
     Dosage: 50 MILLIGRAM
     Route: 048
     Dates: start: 20200730, end: 20200730
  15. ALIZAPRIDE HYDROCHLORIDE [Concomitant]
     Active Substance: ALIZAPRIDE HYDROCHLORIDE
     Dosage: 50 MILLIGRAM
     Route: 048
     Dates: start: 20200509
  16. CODEINE [Concomitant]
     Active Substance: CODEINE
     Indication: Cough
     Dosage: 30 MILLIGRAM
     Route: 048
     Dates: start: 20200509
  17. ZOPICLONE [Concomitant]
     Active Substance: ZOPICLONE
     Indication: Sleep disorder
     Dosage: 7.5 MILLIGRAM
     Route: 048
     Dates: start: 20200509
  18. FOSTER [Concomitant]
     Active Substance: BECLOMETHASONE\FORMOTEROL
     Indication: Dyspnoea
     Dosage: 216 MICROGRAM
     Route: 048
     Dates: start: 20200513
  19. FENTANYL [Concomitant]
     Active Substance: FENTANYL
     Indication: Dyspnoea
     Dosage: 32.5 MICROGRAM
     Route: 045
     Dates: start: 20200509
  20. HYDROMORPHONE [Concomitant]
     Active Substance: HYDROMORPHONE
     Indication: Dyspnoea
     Dosage: 1.3 MILLIGRAM
     Route: 048
     Dates: start: 20200514
  21. FERINJECT [Concomitant]
     Active Substance: FERRIC CARBOXYMALTOSE
     Indication: Mineral supplementation
     Dosage: 500 MILLIGRAM
     Route: 042
     Dates: start: 20200723, end: 20200723
  22. DIPYRONE [Concomitant]
     Active Substance: DIPYRONE
     Indication: Pneumonia
     Route: 065
  23. HEPARIN [Concomitant]
     Active Substance: HEPARIN SODIUM
     Indication: Anticoagulant therapy
     Route: 065
  24. SODIUM CHLORIDE [Concomitant]
     Active Substance: SODIUM CHLORIDE
     Indication: Pneumonia
     Route: 065
  25. RESONIUM [Concomitant]
     Active Substance: SODIUM POLYSTYRENE SULFONATE
     Indication: Blood potassium increased
     Route: 065
  26. HUMAN RED BLOOD CELL [Concomitant]
     Active Substance: HUMAN RED BLOOD CELL
     Indication: Anaemia
     Dosage: 500 MILLILITER
     Route: 042
     Dates: start: 20200730, end: 20200730
  27. Eubiol [Concomitant]
     Indication: Diarrhoea
     Route: 065
  28. ONDANSETRON [Concomitant]
     Active Substance: ONDANSETRON
     Indication: Product used for unknown indication
     Dosage: 8 MILLIGRAM
     Route: 042
     Dates: start: 20200730, end: 20200730
  29. DEXAMETHASONE [Concomitant]
     Active Substance: DEXAMETHASONE
     Indication: Product used for unknown indication
     Dosage: 8 MILLIGRAM
     Route: 048
     Dates: start: 20200702
  30. DEXAMETHASONE [Concomitant]
     Active Substance: DEXAMETHASONE
     Indication: Renal failure
     Dosage: 4 MILLIGRAM
     Route: 042
     Dates: start: 20200730, end: 20200730

REACTIONS (2)
  - Renal failure [Not Recovered/Not Resolved]
  - Bacteraemia [Recovered/Resolved]

NARRATIVE: CASE EVENT DATE: 20200730
